FAERS Safety Report 8845593 (Version 2)
Quarter: 2015Q3

REPORT INFORMATION
  Report Type: Spontaneous
  Country: US (occurrence: US)
  Receive Date: 20121017
  Receipt Date: 20150901
  Transmission Date: 20151125
  Serious: No
  Sender: FDA-Public Use
  Company Number: US-ASTRAZENECA-2012SE77649

PATIENT
  Age: 61 Year
  Sex: Male

DRUGS (2)
  1. TOPROL XL [Suspect]
     Active Substance: METOPROLOL SUCCINATE
     Dosage: DOSE UNKNOWN
     Route: 048
  2. BRILINTA [Suspect]
     Active Substance: TICAGRELOR
     Indication: ACUTE CORONARY SYNDROME
     Route: 048

REACTIONS (6)
  - Vertigo [Unknown]
  - Drug dose omission [Unknown]
  - Product use issue [Unknown]
  - Cardiac disorder [Unknown]
  - Daydreaming [Unknown]
  - Confusional state [Unknown]
